FAERS Safety Report 10542101 (Version 2)
Quarter: 2014Q4

REPORT INFORMATION
  Report Type: Spontaneous
  Country: IT (occurrence: IT)
  Receive Date: 20141024
  Receipt Date: 20141029
  Transmission Date: 20150529
  Serious: Yes (Hospitalization)
  Sender: FDA-Public Use
  Company Number: IT-TEVA-516653ISR

PATIENT
  Age: 72 Year
  Sex: Female
  Weight: 81 kg

DRUGS (13)
  1. METFORALMILLE 1000 MG [Concomitant]
     Indication: TYPE 2 DIABETES MELLITUS
     Dosage: 1 GRAM DAILY;
     Route: 048
  2. DIURESIX 10 MG [Concomitant]
     Indication: TYPE 2 DIABETES MELLITUS
     Dosage: 10 MILLIGRAM DAILY;
     Route: 048
     Dates: end: 20140812
  3. MIRTAZAPINA [Interacting]
     Active Substance: MIRTAZAPINE
     Indication: BIPOLAR DISORDER
     Dosage: 15 MILLIGRAM DAILY;
     Route: 048
     Dates: start: 20140809
  4. CATAPRESAN 300 MCG [Concomitant]
     Indication: HYPERTENSION
     Dosage: 2 DOSAGE FORMS DAILY;
     Route: 048
  5. CARBOLITHIUM 300 MG [Suspect]
     Active Substance: LITHIUM CARBONATE
     Indication: BIPOLAR DISORDER
     Dosage: 600 MILLIGRAM DAILY;
     Route: 048
     Dates: start: 20120101, end: 20140813
  6. LACIREX 6 MG [Concomitant]
     Indication: HYPERTENSION
     Dosage: 1 DOSAGE FORMS DAILY;
     Route: 048
  7. FULCROSUPRA 145 MG [Concomitant]
     Indication: DYSLIPIDAEMIA
     Dosage: 145 MILLIGRAM DAILY;
     Route: 048
     Dates: end: 20140812
  8. DICLOFENAC [Interacting]
     Active Substance: DICLOFENAC
     Indication: POLYMYALGIA RHEUMATICA
     Dosage: 100 MILLIGRAM DAILY;
     Route: 048
     Dates: start: 20140808, end: 20140811
  9. GLIBOMET 400MG + 5 MG [Concomitant]
     Indication: TYPE 2 DIABETES MELLITUS
     Dosage: 2 DOSAGE FORMS DAILY;
     Route: 048
  10. SEACOR 1G [Concomitant]
     Indication: DYSLIPIDAEMIA
     Dosage: 3 GRAM DAILY; SOFT CAPSULE
     Route: 048
  11. ASPIRIN. [Concomitant]
     Active Substance: ASPIRIN
     Indication: MYOCARDIAL ISCHAEMIA
     Dosage: 100 MILLIGRAM DAILY; GASTRO RESISTANT TABLET
     Route: 048
  12. CYMBALTA [Interacting]
     Active Substance: DULOXETINE HYDROCHLORIDE
     Indication: BIPOLAR DISORDER
     Dosage: 60 MILLIGRAM DAILY; GASTRO RESITANT HARD CAPSULE
     Route: 048
     Dates: start: 20140809, end: 20140811
  13. TARGIN 5MG/2.5MG [Concomitant]
     Indication: POLYMYALGIA RHEUMATICA
     Dosage: 3 DOSAGE FORMS DAILY;
     Route: 048

REACTIONS (9)
  - Hyperhidrosis [Recovered/Resolved]
  - Abdominal pain [Recovered/Resolved]
  - Drug interaction [Recovered/Resolved]
  - Toxicity to various agents [Recovered/Resolved]
  - Asthenia [Recovered/Resolved]
  - Palpitations [Recovered/Resolved]
  - Vomiting [Recovered/Resolved]
  - Acute coronary syndrome [Recovered/Resolved]
  - Muscle spasms [Recovered/Resolved]

NARRATIVE: CASE EVENT DATE: 20140810
